FAERS Safety Report 8564344-4 (Version None)
Quarter: 2012Q3

REPORT INFORMATION
  Report Type: 
  Country: None (occurrence: None)
  Receive Date: 20120723
  Receipt Date: 20120709
  Transmission Date: 20120928
  Serious: Yes (Death)
  Sender: FDA-Public Use
  Company Number: 2012CT000005

PATIENT
  Age: 48 Year
  Sex: Male

DRUGS (10)
  1. MAGNESIUM [Concomitant]
  2. SUTENT [Concomitant]
  3. LEVOTHYROXINE SODIUM [Concomitant]
  4. FISH OIL [Concomitant]
  5. POTASSIUM [Concomitant]
  6. KORLYM [Suspect]
     Indication: CUSHING'S SYNDROME
     Dosage: 300 MG;QD;PO
     Route: 048
     Dates: start: 20120516, end: 20120601
  7. FUROSEMIDE [Concomitant]
  8. FERROUS SULFATE TAB [Concomitant]
  9. VITAMIN B COMPLEX CAP [Concomitant]
  10. KLOR-CON [Concomitant]

REACTIONS (2)
  - PANCREATIC CARCINOMA [None]
  - HYPOKALAEMIA [None]
